FAERS Safety Report 6076249-1 (Version None)
Quarter: 2009Q1

REPORT INFORMATION
  Report Type: 
  Country: None (occurrence: None)
  Receive Date: 20090209
  Receipt Date: 20090127
  Transmission Date: 20090719
  Serious: Yes (Other)
  Sender: FDA-Public Use
  Company Number: 2009AL000555

PATIENT
  Age: 72 Year
  Sex: Male

DRUGS (4)
  1. CITALOPRAM HYDROBROMIDE [Suspect]
     Dosage: 10 MG;UNKNOWN;PO
     Route: 048
     Dates: start: 20080101, end: 20080313
  2. EXELON [Concomitant]
  3. MADOPAR [Concomitant]
  4. QUETIAPINE FUMARATE [Concomitant]

REACTIONS (1)
  - NEUROLEPTIC MALIGNANT SYNDROME [None]
